FAERS Safety Report 13527742 (Version 1)
Quarter: 2017Q2

REPORT INFORMATION
  Report Type: Spontaneous
  Country: CN (occurrence: CN)
  Receive Date: 20170509
  Receipt Date: 20170509
  Transmission Date: 20170830
  Serious: Yes (Hospitalization)
  Sender: FDA-Public Use
  Company Number: CN-PFIZER INC-2017199936

PATIENT
  Age: 1 Month
  Sex: Female
  Weight: 3.8 kg

DRUGS (1)
  1. CEFOBID [Suspect]
     Active Substance: CEFOPERAZONE
     Indication: NEONATAL PNEUMONIA
     Dosage: 50 MG, 3X/DAY
     Route: 041
     Dates: start: 20170308, end: 20170313

REACTIONS (1)
  - Liver injury [Recovering/Resolving]

NARRATIVE: CASE EVENT DATE: 20170313
